FAERS Safety Report 10102816 (Version 1)
Quarter: 2014Q2

REPORT INFORMATION
  Report Type: Spontaneous
  Country: US (occurrence: US)
  Receive Date: 20140424
  Receipt Date: 20140424
  Transmission Date: 20141212
  Serious: No
  Sender: FDA-Public Use
  Company Number: US-BRISTOL-MYERS SQUIBB COMPANY-20556114

PATIENT
  Age: 82 Year
  Sex: Female

DRUGS (9)
  1. ELIQUIS [Suspect]
     Dates: start: 20140313
  2. AMIODARONE [Concomitant]
  3. WELCHOL [Concomitant]
  4. STARLIX [Concomitant]
  5. NEXIUM [Concomitant]
  6. SPIRIVA [Concomitant]
  7. DICYCLOMINE [Concomitant]
  8. VITAMIN D [Concomitant]
  9. MULTIVITAMIN [Concomitant]

REACTIONS (2)
  - Erythema [Unknown]
  - Burning sensation [Unknown]
